FAERS Safety Report 7908938-5 (Version None)
Quarter: 2011Q4

REPORT INFORMATION
  Report Type: 
  Country: None (occurrence: None)
  Receive Date: 20111111
  Receipt Date: 20111107
  Transmission Date: 20120403
  Serious: Yes (Hospitalization, Other)
  Sender: FDA-Public Use
  Company Number: US-TEVA-308365USA

PATIENT
  Age: 37 Year
  Sex: Female

DRUGS (6)
  1. AMLODIPINE [Suspect]
  2. TRAMADOL HCL [Suspect]
  3. WARFARIN SODIUM [Suspect]
  4. CARBAMAZEPINE [Suspect]
  5. INSULIN [Suspect]
     Route: 040
  6. LOXAPINE [Suspect]

REACTIONS (5)
  - HYPOKALAEMIA [None]
  - OVERDOSE [None]
  - CARDIOGENIC SHOCK [None]
  - HYPOGLYCAEMIA [None]
  - MULTIPLE DRUG OVERDOSE [None]
